FAERS Safety Report 7009232-X (Version None)
Quarter: 2010Q3

REPORT INFORMATION
  Report Type: 
  Country: None (occurrence: None)
  Receive Date: 20100923
  Receipt Date: 20100909
  Transmission Date: 20110219
  Serious: Yes (Hospitalization)
  Sender: FDA-Public Use
  Company Number: DE-RANBAXY-2010RR-38223

PATIENT
  Age: 77 Year
  Sex: Female

DRUGS (9)
  1. AMLODIPINE [Suspect]
     Indication: HYPERTENSION
     Dosage: 5 MG, QD
  2. RAMIPRIL [Suspect]
     Indication: HYPERTENSION
     Dosage: 5 MG, BID
  3. RAMIPRIL [Suspect]
     Dosage: 2.5 MG, QD
  4. BISOPROLOL FUMARATE [Suspect]
     Indication: HYPERTENSION
     Dosage: 5 MG, QD
  5. BISOPROLOL FUMARATE [Suspect]
     Dosage: 2.5 MG, QD
  6. HYDROCHLOROTHIAZIDE [Suspect]
     Indication: HYPERTENSION
     Dosage: 12.5 MG, UNK
  7. BAYOTENSIN AKUT [Suspect]
     Indication: HYPERTENSION
  8. DOMINAL [Suspect]
     Indication: SLEEP DISORDER
     Dosage: 80 MG, QD
  9. MELPERONE [Concomitant]
     Indication: SLEEP DISORDER

REACTIONS (3)
  - FALL [None]
  - HYPOTENSION [None]
  - SYNCOPE [None]
